FAERS Safety Report 7291253-3 (Version None)
Quarter: 2011Q1

REPORT INFORMATION
  Report Type: 
  Country: None (occurrence: None)
  Receive Date: 20110214
  Receipt Date: 20110211
  Transmission Date: 20110831
  Serious: Yes (Other)
  Sender: FDA-Public Use
  Company Number: TH-ABBOTT-11P-155-0704119-00

PATIENT
  Age: 40 Year
  Sex: Female

DRUGS (3)
  1. UNSPECIFIED VITAMIN [Concomitant]
     Indication: PRODUCT USED FOR UNKNOWN INDICATION
     Route: 048
  2. LORATADINE [Concomitant]
     Indication: NASOPHARYNGITIS
     Route: 048
     Dates: start: 20100901
  3. KLACID [Suspect]
     Indication: UPPER RESPIRATORY TRACT INFECTION
     Route: 048
     Dates: start: 20100901

REACTIONS (1)
  - ABORTION SPONTANEOUS [None]
